FAERS Safety Report 8516713-6 (Version None)
Quarter: 2012Q3

REPORT INFORMATION
  Report Type: 
  Country: None (occurrence: None)
  Receive Date: 20120718
  Receipt Date: 20120709
  Transmission Date: 20120928
  Serious: Yes (Hospitalization)
  Sender: FDA-Public Use
  Company Number: ZA-SANOFI-AVENTIS-2012SA048785

PATIENT
  Sex: Female
  Weight: 1.11 kg

DRUGS (4)
  1. LANTUS [Suspect]
     Route: 064
     Dates: start: 20110421, end: 20120623
  2. SOLOSTAR [Suspect]
     Dates: start: 20110421, end: 20120623
  3. SOLOSTAR [Suspect]
     Dates: start: 20110421, end: 20120623
  4. APIDRA SOLOSTAR [Suspect]
     Route: 064
     Dates: start: 20110421, end: 20120623

REACTIONS (1)
  - PREMATURE BABY [None]
